FAERS Safety Report 7439095-X (Version None)
Quarter: 2011Q2

REPORT INFORMATION
  Report Type: 
  Country: None (occurrence: None)
  Receive Date: 20110427
  Receipt Date: 20110420
  Transmission Date: 20111010
  Serious: Yes (Other)
  Sender: FDA-Public Use
  Company Number: ES-ELI_LILLY_AND_COMPANY-ES201104005774

PATIENT
  Age: 71 Year
  Sex: Female

DRUGS (15)
  1. CITALOPRAM [Concomitant]
     Dosage: 20 MG, QD
  2. BISOPROLOL [Concomitant]
     Dosage: 2.5 MG, QD
  3. BYETTA [Suspect]
     Indication: TYPE 2 DIABETES MELLITUS
     Dosage: UNK, UNKNOWN
     Route: 058
     Dates: start: 20110404, end: 20110413
  4. NIFEDIPINE [Concomitant]
     Dosage: 20 MG, BID
  5. CLOPIDOGREL [Concomitant]
     Dosage: 75 MG, QD
  6. HUMALOG [Concomitant]
     Dosage: 80 U, QD
  7. ATORVASTATIN [Concomitant]
     Dosage: 80 MG, QD
  8. HEMOVAS [Concomitant]
     Dosage: 600 MG, BID
  9. NEURONTIN [Concomitant]
     Dosage: 300 MG, BID
  10. GELOCATIL [Concomitant]
     Dosage: 1 G, EVERY 8 HRS
  11. ASPIRIN [Concomitant]
     Dosage: 100 MG, QD
  12. FAMOTIDINE [Concomitant]
     Dosage: 20 MG, BID
  13. ENALAPRIL [Concomitant]
     Dosage: 20 MG, BID
  14. FUROSEMIDE [Concomitant]
     Dosage: 40 MG, QD
  15. TRANXILIUM [Concomitant]
     Dosage: 5 MG, QD

REACTIONS (4)
  - ASTHENIA [None]
  - OFF LABEL USE [None]
  - TRISMUS [None]
  - DECREASED APPETITE [None]
